FAERS Safety Report 5492564-4 (Version None)
Quarter: 2007Q4

REPORT INFORMATION
  Report Type: 
  Country: None (occurrence: None)
  Receive Date: 20071022
  Receipt Date: 20071010
  Transmission Date: 20080405
  Serious: Yes (Hospitalization)
  Sender: FDA-Public Use
  Company Number: JP-PFIZER INC-2007086347

PATIENT
  Sex: Female

DRUGS (5)
  1. SALAZOPYRIN [Suspect]
     Indication: COLITIS ULCERATIVE
     Route: 048
     Dates: start: 20070824, end: 20070907
  2. MUCOSOLVAN [Concomitant]
     Route: 048
  3. DICLOFENAC [Concomitant]
     Route: 048
  4. PREDONINE [Concomitant]
  5. SOLANAX [Concomitant]
     Route: 048

REACTIONS (4)
  - GASTRIC ULCER [None]
  - HAEMATEMESIS [None]
  - HAEMOGLOBIN DECREASED [None]
  - RED BLOOD CELL COUNT INCREASED [None]
